FAERS Safety Report 18116291 (Version 3)
Quarter: 2021Q3

REPORT INFORMATION
  Report Type: Spontaneous
  Country: US (occurrence: US)
  Receive Date: 20200805
  Receipt Date: 20210720
  Transmission Date: 20211014
  Serious: Yes (Other)
  Sender: FDA-Public Use
  Company Number: US-TAKEDA-2020TUS033342

PATIENT

DRUGS (13)
  1. NEXIUM [Suspect]
     Active Substance: ESOMEPRAZOLE MAGNESIUM
     Indication: GASTROOESOPHAGEAL REFLUX DISEASE
     Dosage: UNK
     Route: 048
     Dates: start: 201602, end: 201802
  2. VITAMIN C [Concomitant]
     Active Substance: ASCORBIC ACID
     Dosage: UNK
  3. DEXILANT [Suspect]
     Active Substance: DEXLANSOPRAZOLE
     Dosage: 40 MILLIGRAM, QD
     Route: 048
     Dates: end: 2018
  4. NEXIUM [Suspect]
     Active Substance: ESOMEPRAZOLE MAGNESIUM
     Dosage: UNK
     Route: 048
     Dates: start: 2001
  5. NEXIUM 24HR [Suspect]
     Active Substance: ESOMEPRAZOLE MAGNESIUM
     Indication: GASTROOESOPHAGEAL REFLUX DISEASE
     Dosage: 20 MILLIGRAM, BID
     Route: 048
     Dates: start: 201401
  6. ACYCLOVIR [ACICLOVIR] [Concomitant]
     Active Substance: ACYCLOVIR
     Indication: INFECTION
     Dosage: UNK
  7. DEXILANT [Suspect]
     Active Substance: DEXLANSOPRAZOLE
     Indication: GASTROOESOPHAGEAL REFLUX DISEASE
     Dosage: UNK
     Route: 048
     Dates: start: 201602, end: 201802
  8. NEXIUM [Suspect]
     Active Substance: ESOMEPRAZOLE MAGNESIUM
     Dosage: 20 MILLIGRAM, BID
     Route: 048
     Dates: start: 200201, end: 2019
  9. ACIPHEX [Suspect]
     Active Substance: RABEPRAZOLE SODIUM
     Indication: GASTROOESOPHAGEAL REFLUX DISEASE
     Dosage: 20 MILLIGRAM, BID
     Route: 048
     Dates: end: 2020
  10. TUMS [Concomitant]
     Active Substance: CALCIUM CARBONATE
     Dosage: UNK
  11. PANTOPRAZOLE [Suspect]
     Active Substance: PANTOPRAZOLE
     Indication: GASTROOESOPHAGEAL REFLUX DISEASE
     Dosage: UNK
     Route: 048
  12. PRILOSEC [Suspect]
     Active Substance: OMEPRAZOLE MAGNESIUM
     Indication: GASTROOESOPHAGEAL REFLUX DISEASE
     Dosage: UNK
     Route: 048
     Dates: start: 1989, end: 2019
  13. MELOXICAM. [Concomitant]
     Active Substance: MELOXICAM
     Indication: INFLAMMATION
     Dosage: 15 MILLIGRAM
     Route: 048

REACTIONS (2)
  - Gastrooesophageal reflux disease [Not Recovered/Not Resolved]
  - Chronic kidney disease [Not Recovered/Not Resolved]
